FAERS Safety Report 10174493 (Version 1)
Quarter: 2014Q2

REPORT INFORMATION
  Report Type: Spontaneous
  Country: US (occurrence: US)
  Receive Date: 20140515
  Receipt Date: 20140515
  Transmission Date: 20141212
  Serious: Yes (Other)
  Sender: FDA-Public Use
  Company Number: US-BAYER-2014-069404

PATIENT
  Age: 70 Year
  Sex: Female
  Weight: 54.88 kg

DRUGS (4)
  1. ALEVE CAPLET [Suspect]
     Dosage: 50 DF ONCE
     Route: 048
     Dates: start: 20140504, end: 20140504
  2. CLONAZEPAM [Concomitant]
  3. DIVALPROEX [Concomitant]
  4. LORAZEPAM [Concomitant]

REACTIONS (8)
  - Self injurious behaviour [None]
  - Vomiting [Recovered/Resolved]
  - Diarrhoea [Recovered/Resolved]
  - Nausea [Not Recovered/Not Resolved]
  - Vomiting [Not Recovered/Not Resolved]
  - Intentional overdose [None]
  - Abdominal discomfort [None]
  - Expired product administered [None]
